FAERS Safety Report 17622544 (Version 1)
Quarter: 2020Q2

REPORT INFORMATION
  Report Type: Spontaneous
  Country: FR (occurrence: FR)
  Receive Date: 20200403
  Receipt Date: 20200403
  Transmission Date: 20200713
  Serious: Yes (Hospitalization, Other)
  Sender: FDA-Public Use
  Company Number: FR-SA-2020SA076858

PATIENT
  Age: 75 Year
  Sex: Female
  Weight: 41 kg

DRUGS (3)
  1. IMBRUVICA [Suspect]
     Active Substance: IBRUTINIB
     Indication: CHRONIC LYMPHOCYTIC LEUKAEMIA
     Dosage: 3 DF, QD
     Route: 048
     Dates: start: 20160301, end: 20200106
  2. APROVEL [Suspect]
     Active Substance: IRBESARTAN
     Indication: HYPERTENSION
     Dosage: 1 DF, QD, TILL 13-NOV-2019
     Route: 048
  3. ZELITREX [Suspect]
     Active Substance: VALACYCLOVIR HYDROCHLORIDE
     Indication: ANTIFUNGAL PROPHYLAXIS
     Dosage: 1 DF, QD
     Route: 048
     Dates: start: 20160301, end: 20200106

REACTIONS (5)
  - Fall [Recovered/Resolved]
  - Confusional state [Recovered/Resolved]
  - Acute kidney injury [Recovering/Resolving]
  - Pleural effusion [Recovering/Resolving]
  - Nephrotic syndrome [Recovering/Resolving]

NARRATIVE: CASE EVENT DATE: 20191118
